FAERS Safety Report 10488151 (Version 3)
Quarter: 2014Q4

REPORT INFORMATION
  Report Type: Spontaneous
  Country: SE (occurrence: SE)
  Receive Date: 20141002
  Receipt Date: 20141104
  Transmission Date: 20150528
  Serious: Yes (Hospitalization)
  Sender: FDA-Public Use
  Company Number: SE-AMGEN-SWESP2014068162

PATIENT
  Age: 46 Year
  Sex: Female

DRUGS (5)
  1. TIBINIDE [Concomitant]
     Active Substance: ISONIAZID
     Indication: LATENT TUBERCULOSIS
     Dosage: 300 MG, 1X/DAY
     Dates: start: 20140701
  2. ALVEDON [Concomitant]
     Active Substance: ACETAMINOPHEN
     Dosage: 500 MG, 1-2 TABLETS X4/DAY AS NEEDED
     Dates: start: 20090225
  3. ENBREL [Suspect]
     Active Substance: ETANERCEPT
     Indication: ANKYLOSING SPONDYLITIS
     Dosage: 50 MG, WEEKLY
     Route: 058
     Dates: start: 20140805
  4. PYRIDOXINE [Concomitant]
     Active Substance: PYRIDOXINE
     Dosage: 40 MG, 1X/DAY
     Dates: start: 20140701
  5. IPREN [Concomitant]
     Active Substance: IBUPROFEN
     Dosage: 400MG, 1 TABLET X3/DAY AS NEEDED
     Dates: start: 20140515

REACTIONS (9)
  - Malaise [Not Recovered/Not Resolved]
  - Hypoaesthesia [Recovered/Resolved]
  - Fatigue [Not Recovered/Not Resolved]
  - Pelvic infection [Not Recovered/Not Resolved]
  - Kidney infection [Not Recovered/Not Resolved]
  - Abdominal distension [Not Recovered/Not Resolved]
  - Peripheral swelling [Not Recovered/Not Resolved]
  - Pyrexia [Not Recovered/Not Resolved]
  - Urinary tract infection [Recovered/Resolved]

NARRATIVE: CASE EVENT DATE: 201408
